FAERS Safety Report 8733621 (Version 2)
Quarter: 2012Q4

REPORT INFORMATION
  Report Type: 
  Country: US (occurrence: US)
  Receive Date: 20120821
  Receipt Date: 20120919
  Transmission Date: 20130627
  Serious: Yes (Disabling)
  Sender: FDA-Public Use
  Company Number: US-PFIZER INC-2012200096

PATIENT
  Age: 41 Year
  Sex: Male
  Weight: 63.5 kg

DRUGS (7)
  1. NEURONTIN [Suspect]
     Indication: NEURALGIA
     Dosage: 300 mg, 3x/day
     Route: 048
     Dates: start: 200808, end: 2008
  2. NEURONTIN [Suspect]
     Dosage: 600 mg, 3x/day
     Route: 048
     Dates: start: 2008
  3. NEURONTIN [Suspect]
     Dosage: UNK, 3x/day
     Route: 048
  4. NEURONTIN [Suspect]
     Dosage: 600 mg, 3x/day
     Route: 048
  5. PERCOCET [Concomitant]
     Indication: PAIN
     Dosage: UNK
  6. FLEX-ALL 454 [Concomitant]
     Indication: MUSCLE RELAXANT THERAPY
     Dosage: UNK
  7. FENTANYL [Concomitant]
     Indication: NEURALGIA
     Dosage: UNK

REACTIONS (2)
  - Nerve injury [Not Recovered/Not Resolved]
  - Drug ineffective [Unknown]
